FAERS Safety Report 7851179-0 (Version None)
Quarter: 2011Q3

REPORT INFORMATION
  Report Type: 
  Country: None (occurrence: None)
  Receive Date: 20110902
  Receipt Date: 20110616
  Transmission Date: 20111222
  Serious: No
  Sender: FDA-Public Use
  Company Number: 163-22393-11062745

PATIENT

DRUGS (2)
  1. DECADRON [Concomitant]
  2. ISTODAX [Suspect]
     Indication: PRODUCT USED FOR UNKNOWN INDICATION
     Dosage: 17 MG, DAYS 1, 8 + 15 OF 28 DAY,CYCLE UNKNOWN

REACTIONS (1)
  - NAUSEA [None]
